FAERS Safety Report 8416606-9 (Version None)
Quarter: 2012Q2

REPORT INFORMATION
  Report Type: 
  Country: None (occurrence: None)
  Receive Date: 20120606
  Receipt Date: 20120531
  Transmission Date: 20120825
  Serious: No
  Sender: FDA-Public Use
  Company Number: US-BAYER-2012-055364

PATIENT

DRUGS (3)
  1. ALEVE (CAPLET) [Suspect]
     Dosage: 4 U, UNK
     Route: 048
  2. ALLERGY MEDICATION [Concomitant]
  3. IBUPROFEN [Concomitant]

REACTIONS (1)
  - NO ADVERSE EVENT [None]
